FAERS Safety Report 6904002-2 (Version None)
Quarter: 2010Q3

REPORT INFORMATION
  Report Type: 
  Country: None (occurrence: None)
  Receive Date: 20100804
  Receipt Date: 20090224
  Transmission Date: 20110219
  Serious: No
  Sender: FDA-Public Use
  Company Number: US-PFIZER INC-2009175457

PATIENT
  Sex: Female
  Weight: 113 kg

DRUGS (13)
  1. LYRICA [Suspect]
     Indication: PAIN
     Dosage: 25 MG, 1X/DAY
     Dates: start: 20090223
  2. LYRICA [Suspect]
     Indication: BACK PAIN
  3. LYRICA [Suspect]
     Indication: HYPOAESTHESIA
  4. LYRICA [Suspect]
     Indication: BURNING SENSATION
  5. VICODIN [Concomitant]
  6. NORCO [Concomitant]
     Dosage: UNK
  7. FIORICET [Concomitant]
  8. FIORINAL [Concomitant]
     Dosage: UNK
  9. VALIUM [Concomitant]
     Dosage: UNK
  10. VITAMIN TAB [Concomitant]
     Dosage: UNK
  11. BENADRYL [Concomitant]
     Dosage: UNK
  12. HERBAL PREPARATION [Concomitant]
     Dosage: UNK
  13. ANALGESICS [Concomitant]

REACTIONS (1)
  - VISUAL IMPAIRMENT [None]
